FAERS Safety Report 17577986 (Version 3)
Quarter: 2020Q2

REPORT INFORMATION
  Report Type: Spontaneous
  Country: US (occurrence: US)
  Receive Date: 20200324
  Receipt Date: 20200616
  Transmission Date: 20200713
  Serious: Yes (Death, Hospitalization)
  Sender: FDA-Public Use
  Company Number: US-VIFOR (INTERNATIONAL) INC.-VIT-2020-04732

PATIENT
  Age: 87 Year
  Sex: Male

DRUGS (37)
  1. ALLOPURINOL. [Concomitant]
     Active Substance: ALLOPURINOL
     Dates: start: 20190930
  2. ALLOPURINOL. [Concomitant]
     Active Substance: ALLOPURINOL
     Dates: start: 20200320
  3. TAMSULOSIN [Concomitant]
     Active Substance: TAMSULOSIN
     Dates: start: 20200209
  4. PANTOPRAZOLE [Concomitant]
     Active Substance: PANTOPRAZOLE
     Dates: start: 20200207
  5. MEMANTINE HCL [Concomitant]
     Active Substance: MEMANTINE
     Dates: start: 20191115
  6. DONEPEZIL. [Concomitant]
     Active Substance: DONEPEZIL
     Dates: start: 20200331
  7. GABAPENTIN. [Concomitant]
     Active Substance: GABAPENTIN
     Dates: start: 20191231
  8. MEMANTINE HCL [Concomitant]
     Active Substance: MEMANTINE
     Dates: start: 20200207
  9. LEVOTHYROXIN [Concomitant]
     Active Substance: LEVOTHYROXINE
     Dates: start: 20191115
  10. LEVOTHYROXIN [Concomitant]
     Active Substance: LEVOTHYROXINE
     Dates: start: 20200207
  11. LORATADINE. [Concomitant]
     Active Substance: LORATADINE
     Dates: start: 20200401
  12. VELTASSA [Suspect]
     Active Substance: PATIROMER
     Route: 048
     Dates: start: 20200115, end: 202004
  13. LEVOTHYROXIN [Concomitant]
     Active Substance: LEVOTHYROXINE
     Dates: start: 20200319
  14. OMEGA 3-ACID [Concomitant]
     Dates: start: 20200219
  15. ONDANSETRON [Concomitant]
     Active Substance: ONDANSETRON
     Dates: start: 20200403
  16. VELTASSA [Suspect]
     Active Substance: PATIROMER
     Indication: RENAL DISORDER
     Dates: start: 20200219, end: 20200417
  17. ROSUVASTATIN. [Concomitant]
     Active Substance: ROSUVASTATIN
     Dates: start: 20200120
  18. VELTASSA [Suspect]
     Active Substance: PATIROMER
     Dosage: 1 OR 2 DOSES
     Route: 048
     Dates: start: 20200316
  19. VELTASSA [Suspect]
     Active Substance: PATIROMER
     Dosage: 8.4 GRAM 2 PACKETS DAILY
     Route: 048
     Dates: start: 202001
  20. ELIQUIS [Concomitant]
     Active Substance: APIXABAN
     Dates: start: 20190730
  21. ELIQUIS [Concomitant]
     Active Substance: APIXABAN
     Dates: start: 20200120
  22. SODIUM BICAR [Concomitant]
     Dates: start: 20191106
  23. ROSUVASTATIN. [Concomitant]
     Active Substance: ROSUVASTATIN
     Dates: start: 20200219
  24. LEVOTHYROXIN [Concomitant]
     Active Substance: LEVOTHYROXINE
     Dates: start: 20200209
  25. FINASTERIDE. [Concomitant]
     Active Substance: FINASTERIDE
     Dates: start: 20191126
  26. DONEPEZIL. [Concomitant]
     Active Substance: DONEPEZIL
     Dates: start: 20191227
  27. DONEPEZIL. [Concomitant]
     Active Substance: DONEPEZIL
     Dates: start: 20191231
  28. TAMSULOSIN [Concomitant]
     Active Substance: TAMSULOSIN
     Dates: start: 20200319
  29. ROSUVASTATIN. [Concomitant]
     Active Substance: ROSUVASTATIN
     Dates: start: 20191115
  30. DONEPEZIL. [Concomitant]
     Active Substance: DONEPEZIL
     Dates: start: 20200325
  31. DICYCLOMINE [Concomitant]
     Active Substance: DICYCLOMINE HYDROCHLORIDE
     Dates: start: 20200403
  32. VELTASSA [Suspect]
     Active Substance: PATIROMER
     Indication: HYPERKALAEMIA
     Route: 048
     Dates: start: 20200114
  33. ELIQUIS [Concomitant]
     Active Substance: APIXABAN
     Dates: start: 20200121
  34. TAMSULOSIN [Concomitant]
     Active Substance: TAMSULOSIN
     Dates: start: 20191115
  35. ROSUVASTATIN. [Concomitant]
     Active Substance: ROSUVASTATIN
     Dates: start: 20200221
  36. ROSUVASTATIN. [Concomitant]
     Active Substance: ROSUVASTATIN
     Dates: start: 20200224
  37. PANTOPRAZOLE [Concomitant]
     Active Substance: PANTOPRAZOLE
     Dates: start: 20191115

REACTIONS (11)
  - Abdominal pain upper [Unknown]
  - Sepsis [Fatal]
  - Off label use [Unknown]
  - COVID-19 [Unknown]
  - Abdominal distension [Unknown]
  - Drug ineffective [Unknown]
  - Ill-defined disorder [Unknown]
  - Small intestinal obstruction [Fatal]
  - Respiratory failure [Fatal]
  - Pneumonia [Fatal]
  - Aspiration [Unknown]

NARRATIVE: CASE EVENT DATE: 2020
